FAERS Safety Report 13081840 (Version 2)
Quarter: 2017Q1

REPORT INFORMATION
  Report Type: Spontaneous
  Country: JP (occurrence: JP)
  Receive Date: 20170103
  Receipt Date: 20170223
  Transmission Date: 20170428
  Serious: Yes (Hospitalization)
  Sender: FDA-Public Use
  Company Number: JP-BAYER-2016-244424

PATIENT
  Age: 71 Year
  Sex: Female
  Weight: 38.9 kg

DRUGS (9)
  1. REBAMIPIDE [Concomitant]
     Active Substance: REBAMIPIDE
     Dosage: DAILY DOSE 300 MG
     Route: 048
     Dates: start: 20160115, end: 20161125
  2. HUMALOG MIX [Concomitant]
     Active Substance: INSULIN LISPRO
     Dosage: 8 U, TID
     Route: 058
     Dates: start: 20160219
  3. NEXAVAR [Suspect]
     Active Substance: SORAFENIB
     Indication: HEPATOCELLULAR CARCINOMA
     Dosage: 400 MG DAILY DOSE
     Route: 048
     Dates: start: 20160923, end: 20161124
  4. DIOVAN [Concomitant]
     Active Substance: VALSARTAN
     Dosage: DAILY DOSE 80 MG
     Route: 048
     Dates: start: 20110302, end: 20161125
  5. MEPROBAMATE. [Concomitant]
     Active Substance: MEPROBAMATE
     Dosage: DAILY DOSE 100 MG
     Route: 048
     Dates: start: 20160708
  6. ADALAT-CR 40 MG [Concomitant]
     Dosage: DAILY DOSE 40 MG
     Route: 048
     Dates: start: 20110302
  7. GASTER [Concomitant]
     Active Substance: FAMOTIDINE
     Dosage: DAILY DOSE 20 MG
     Route: 048
     Dates: start: 20161028, end: 20161125
  8. METFORMIN HYDROCHLORIDE. [Concomitant]
     Active Substance: METFORMIN HYDROCHLORIDE
     Dosage: DAILY DOSE 1000 MG
     Route: 048
     Dates: start: 20110712, end: 20161125
  9. NEXAVAR [Suspect]
     Active Substance: SORAFENIB
     Indication: HEPATOCELLULAR CARCINOMA
     Dosage: 200 MG DAILY DOSE
     Route: 048
     Dates: start: 20170203

REACTIONS (7)
  - Liver abscess [Recovered/Resolved]
  - Inflammation [Recovered/Resolved]
  - Pyrexia [Recovered/Resolved]
  - Malaise [Recovered/Resolved]
  - Abdominal pain upper [Recovered/Resolved]
  - Decreased appetite [Recovered/Resolved]
  - Alopecia [None]

NARRATIVE: CASE EVENT DATE: 20161028
